FAERS Safety Report 25006072 (Version 1)
Quarter: 2025Q1

REPORT INFORMATION
  Report Type: Spontaneous
  Country: CA (occurrence: CA)
  Receive Date: 20250224
  Receipt Date: 20250224
  Transmission Date: 20250409
  Serious: Yes (Other)
  Sender: MERCK SHARP & DOHME LLC
  Company Number: CA-009507513-2257701

PATIENT
  Age: 57 Year
  Sex: Female

DRUGS (2)
  1. IVERMECTIN [Suspect]
     Active Substance: IVERMECTIN
     Indication: Colorectal cancer stage IV
     Route: 048
     Dates: start: 20241015
  2. FENBENDAZOLE [Suspect]
     Active Substance: FENBENDAZOLE
     Indication: Colorectal cancer stage IV
     Route: 065

REACTIONS (3)
  - Carcinoembryonic antigen increased [Unknown]
  - Off label use [Unknown]
  - Drug effective for unapproved indication [Unknown]

NARRATIVE: CASE EVENT DATE: 20241001
